FAERS Safety Report 10462654 (Version 2)
Quarter: 2018Q4

REPORT INFORMATION
  Report Type: Spontaneous
  Country: BR (occurrence: US)
  Receive Date: 20140918
  Receipt Date: 20181127
  Transmission Date: 20190204
  Serious: Yes (Congenital Anomaly, Other)
  Sender: FDA-Public Use
  Company Number: US-TEVA-509953USA

PATIENT

DRUGS (1)
  1. COPAXONE [Suspect]
     Active Substance: GLATIRAMER ACETATE
     Indication: RELAPSING-REMITTING MULTIPLE SCLEROSIS
     Route: 058

REACTIONS (9)
  - Cleft lip [Unknown]
  - Abortion spontaneous [Unknown]
  - Congenital anomaly [Unknown]
  - Adrenal cyst [Unknown]
  - Maternal exposure during pregnancy [Unknown]
  - Finger deformity [Unknown]
  - Cardiomyopathy [Unknown]
  - Anencephaly [Unknown]
  - Urethral stenosis [Unknown]
